FAERS Safety Report 6816726-6 (Version None)
Quarter: 2010Q3

REPORT INFORMATION
  Report Type: 
  Country: None (occurrence: None)
  Receive Date: 20100706
  Receipt Date: 20100622
  Transmission Date: 20110219
  Serious: Yes (Other)
  Sender: FDA-Public Use
  Company Number: PHHY2010CA42742

PATIENT
  Age: 21 Year
  Sex: Male

DRUGS (3)
  1. CLOZAPINE [Suspect]
     Indication: SCHIZOPHRENIA
     Dosage: 275 MG/DAY
  2. CLOZAPINE [Interacting]
     Dosage: 25 MG/DAY
  3. ARIPIPRAZOLE [Interacting]
     Dosage: 10 MG/DAY

REACTIONS (5)
  - CONCOMITANT DISEASE PROGRESSION [None]
  - DRUG INTERACTION [None]
  - MENTAL IMPAIRMENT [None]
  - OBSESSIVE-COMPULSIVE DISORDER [None]
  - PSYCHOTIC DISORDER [None]
